FAERS Safety Report 7944815-1 (Version None)
Quarter: 2011Q4

REPORT INFORMATION
  Report Type: 
  Country: None (occurrence: None)
  Receive Date: 20111129
  Receipt Date: 20111117
  Transmission Date: 20120403
  Serious: Yes (Hospitalization)
  Sender: FDA-Public Use
  Company Number: PL-JNJFOC-20100405122

PATIENT
  Sex: Male
  Weight: 71 kg

DRUGS (6)
  1. GOLIMUMAB [Suspect]
     Indication: COLITIS ULCERATIVE
     Route: 058
     Dates: start: 20100521
  2. PREDNISONE [Concomitant]
     Indication: COLITIS ULCERATIVE
     Route: 048
     Dates: start: 20100305
  3. ASAMAX [Concomitant]
     Indication: COLITIS ULCERATIVE
     Route: 048
  4. AZATHIOPRINE [Concomitant]
     Indication: COLITIS ULCERATIVE
     Route: 048
  5. GOLIMUMAB [Suspect]
     Route: 058
     Dates: start: 20100507
  6. INDAPAMIDE [Concomitant]
     Route: 048

REACTIONS (1)
  - LATENT TUBERCULOSIS [None]
